FAERS Safety Report 13239310 (Version 1)
Quarter: 2017Q1

REPORT INFORMATION
  Report Type: Spontaneous
  Country: US (occurrence: US)
  Receive Date: 20170216
  Receipt Date: 20170216
  Transmission Date: 20170428
  Serious: No
  Sender: FDA-Public Use
  Company Number: US-BAYER-2017-031082

PATIENT
  Age: 52 Year
  Sex: Male

DRUGS (1)
  1. ALEVE [Suspect]
     Active Substance: NAPROXEN SODIUM
     Dosage: UNK
     Route: 048

REACTIONS (3)
  - Drug ineffective [None]
  - Medical device pain [Not Recovered/Not Resolved]
  - Device ineffective [Unknown]

NARRATIVE: CASE EVENT DATE: 20170202
